FAERS Safety Report 19154232 (Version 1)
Quarter: 2021Q2

REPORT INFORMATION
  Report Type: Spontaneous
  Country: FR (occurrence: FR)
  Receive Date: 20210419
  Receipt Date: 20210419
  Transmission Date: 20210717
  Serious: Yes (Hospitalization)
  Sender: FDA-Public Use
  Company Number: FR-SA-2021SA124974

PATIENT
  Age: 56 Year
  Sex: Male

DRUGS (10)
  1. PARACETAMOL [Suspect]
     Active Substance: ACETAMINOPHEN
     Indication: PAIN
     Dosage: 3 G
     Route: 065
  2. XATRAL [Suspect]
     Active Substance: ALFUZOSIN
     Indication: BLADDER CATHETERISATION
     Dosage: 10 MG
     Route: 048
  3. AMOXICILLIN. [Suspect]
     Active Substance: AMOXICILLIN
     Indication: BRONCHITIS
     Route: 048
     Dates: start: 20210210, end: 20210213
  4. METHYLPREDNISOLONE SODIUM SUCCINATE. [Suspect]
     Active Substance: METHYLPREDNISOLONE SODIUM SUCCINATE
     Indication: BRONCHITIS
     Route: 048
     Dates: start: 20210210, end: 20210213
  5. OXAZEPAM. [Suspect]
     Active Substance: OXAZEPAM
     Indication: ANXIETY
     Dosage: 25 MG
     Route: 065
  6. INEXIUM [ESOMEPRAZOLE SODIUM] [Suspect]
     Active Substance: ESOMEPRAZOLE SODIUM
     Indication: PROPHYLAXIS
     Dosage: 20 MG
     Route: 042
  7. CIPROFLOXACIN. [Suspect]
     Active Substance: CIPROFLOXACIN
     Indication: LUNG DISORDER
     Dosage: 1200 MG, QD
     Route: 042
     Dates: start: 2021, end: 2021
  8. SPIRAMYCIN [Suspect]
     Active Substance: SPIRAMYCIN
     Dosage: UNK
     Dates: start: 20210213
  9. SPIRAMYCIN [Suspect]
     Active Substance: SPIRAMYCIN
     Indication: BRONCHOPNEUMOPATHY
     Route: 065
  10. LOVENOX [Suspect]
     Active Substance: ENOXAPARIN SODIUM
     Indication: VASCULAR DISORDER PROPHYLAXIS
     Dosage: 6000 IU
     Route: 058

REACTIONS (1)
  - Rash maculo-papular [Unknown]

NARRATIVE: CASE EVENT DATE: 202102
